FAERS Safety Report 12210827 (Version 1)
Quarter: 2016Q1

REPORT INFORMATION
  Report Type: Spontaneous
  Country: US (occurrence: US)
  Receive Date: 20160325
  Receipt Date: 20160325
  Transmission Date: 20160526
  Serious: Yes (Other)
  Sender: FDA-Public Use
  Company Number: US-ASTRAZENECA-2016SE30475

PATIENT
  Age: 70 Year
  Sex: Female

DRUGS (10)
  1. AROMASIN [Concomitant]
     Active Substance: EXEMESTANE
     Indication: BREAST CANCER FEMALE
     Dates: start: 20160315
  2. NIACIN. [Concomitant]
     Active Substance: NIACIN
  3. ARIMIDEX [Suspect]
     Active Substance: ANASTROZOLE
     Route: 048
     Dates: start: 201406
  4. CRESTOR [Suspect]
     Active Substance: ROSUVASTATIN CALCIUM
     Indication: STENT PLACEMENT
     Route: 048
     Dates: start: 2013
  5. CRESTOR [Suspect]
     Active Substance: ROSUVASTATIN CALCIUM
     Indication: STENT PLACEMENT
     Route: 048
  6. CRESTOR [Suspect]
     Active Substance: ROSUVASTATIN CALCIUM
     Indication: STENT PLACEMENT
     Route: 048
  7. ARIMIDEX [Suspect]
     Active Substance: ANASTROZOLE
     Route: 048
     Dates: start: 201406
  8. VITAMINS NOS [Concomitant]
     Active Substance: VITAMINS
  9. CRESTOR [Suspect]
     Active Substance: ROSUVASTATIN CALCIUM
     Indication: STENT PLACEMENT
     Route: 048
  10. CRESTOR [Suspect]
     Active Substance: ROSUVASTATIN CALCIUM
     Indication: STENT PLACEMENT
     Route: 048

REACTIONS (5)
  - Breast cancer [Unknown]
  - Sleep disorder due to general medical condition, insomnia type [Unknown]
  - Lipids increased [Unknown]
  - Burning sensation [Not Recovered/Not Resolved]
  - Paraesthesia [Not Recovered/Not Resolved]

NARRATIVE: CASE EVENT DATE: 201402
